FAERS Safety Report 18419280 (Version 1)
Quarter: 2020Q4

REPORT INFORMATION
  Report Type: Spontaneous
  Country: DE (occurrence: DE)
  Receive Date: 20201023
  Receipt Date: 20201023
  Transmission Date: 20210114
  Serious: Yes (Hospitalization)
  Sender: FDA-Public Use
  Company Number: DE-BAYER-2020-228074

PATIENT
  Age: 36 Year
  Sex: Female

DRUGS (1)
  1. ADEMPAS [Suspect]
     Active Substance: RIOCIGUAT
     Indication: PULMONARY HYPERTENSION
     Dosage: 2 MG, TID

REACTIONS (8)
  - Epistaxis [None]
  - Benign neoplasm [None]
  - Haemangioma [None]
  - Inappropriate schedule of product administration [None]
  - Headache [None]
  - Headache [None]
  - Blood urine present [None]
  - Nasal obstruction [None]

NARRATIVE: CASE EVENT DATE: 202010
